FAERS Safety Report 11320544 (Version 1)
Quarter: 2015Q3

REPORT INFORMATION
  Report Type: Spontaneous
  Country: IT (occurrence: IT)
  Receive Date: 20150729
  Receipt Date: 20150729
  Transmission Date: 20151125
  Serious: Yes (Other)
  Sender: FDA-Public Use
  Company Number: IT-JNJFOC-20150720569

PATIENT
  Age: 73 Year
  Sex: Male

DRUGS (1)
  1. REMICADE [Suspect]
     Active Substance: INFLIXIMAB
     Indication: CROHN^S DISEASE
     Route: 042
     Dates: start: 20110405

REACTIONS (1)
  - Prostate cancer [Recovered/Resolved]

NARRATIVE: CASE EVENT DATE: 20150630
